FAERS Safety Report 8839564 (Version 1)
Quarter: 2012Q4

REPORT INFORMATION
  Report Type: 
  Country: KR (occurrence: KR)
  Receive Date: 20121015
  Receipt Date: 20121015
  Transmission Date: 20130627
  Serious: Yes (Other)
  Sender: FDA-Public Use
  Company Number: PHHY2012KR090887

PATIENT
  Age: 56 Year
  Sex: Female

DRUGS (1)
  1. SANDOSTATIN LAR [Suspect]
     Indication: ACROMEGALY
     Dosage: 20 mg, UNK
     Route: 030
     Dates: start: 20090331

REACTIONS (1)
  - Carcinoid tumour [Unknown]
